FAERS Safety Report 5342652-8 (Version None)
Quarter: 2007Q2

REPORT INFORMATION
  Report Type: 
  Country: None (occurrence: None)
  Receive Date: 20070601
  Receipt Date: 20070522
  Transmission Date: 20071010
  Serious: Yes (Other)
  Sender: FDA-Public Use
  Company Number: NL-PFIZER INC-2007038391

PATIENT
  Sex: Female
  Weight: 73 kg

DRUGS (1)
  1. CHAMPIX [Suspect]
     Indication: NICOTINE DEPENDENCE
     Route: 048
     Dates: start: 20070401, end: 20070423

REACTIONS (2)
  - FLUID RETENTION [None]
  - HEPATIC ENZYME ABNORMAL [None]
